FAERS Safety Report 6849463-2 (Version None)
Quarter: 2010Q3

REPORT INFORMATION
  Report Type: 
  Country: None (occurrence: None)
  Receive Date: 20100716
  Receipt Date: 20070929
  Transmission Date: 20110219
  Serious: No
  Sender: FDA-Public Use
  Company Number: US-PFIZER INC-2007082522

PATIENT
  Sex: Female
  Weight: 68.181 kg

DRUGS (7)
  1. CHANTIX [Suspect]
     Indication: SMOKING CESSATION THERAPY
     Route: 048
     Dates: start: 20070801, end: 20070801
  2. DRUG, UNSPECIFIED [Concomitant]
     Route: 048
  3. PLAVIX [Concomitant]
     Route: 048
  4. LASIX [Concomitant]
     Route: 048
  5. POTASSIUM CHLORIDE [Concomitant]
     Route: 048
  6. AMIODARONE [Concomitant]
     Route: 048
  7. COREG [Concomitant]
     Route: 048

REACTIONS (1)
  - NAUSEA [None]
